FAERS Safety Report 16841923 (Version 1)
Quarter: 2019Q3

REPORT INFORMATION
  Report Type: Spontaneous
  Country: DE (occurrence: DE)
  Receive Date: 20190923
  Receipt Date: 20190923
  Transmission Date: 20191005
  Serious: Yes (Other)
  Sender: FDA-Public Use
  Company Number: PHHY2019DE219812

PATIENT
  Sex: Male

DRUGS (1)
  1. PRAMIPEXOLE. [Suspect]
     Active Substance: PRAMIPEXOLE
     Indication: PROGRESSIVE SUPRANUCLEAR PALSY
     Dosage: UNK
     Route: 065
     Dates: start: 201908

REACTIONS (7)
  - Balance disorder [Unknown]
  - Condition aggravated [Unknown]
  - Fall [Unknown]
  - Eye disorder [Unknown]
  - Progressive supranuclear palsy [Unknown]
  - Gait disturbance [Unknown]
  - Product use in unapproved indication [Unknown]

NARRATIVE: CASE EVENT DATE: 2019
